FAERS Safety Report 9820327 (Version 1)
Quarter: 2013Q4

REPORT INFORMATION
  Report Type: Spontaneous
  Country: US (occurrence: None)
  Receive Date: 20131021
  Receipt Date: 20131021
  Transmission Date: 20140711
  Serious: Yes (Other)
  Sender: FDA-Public Use
  Company Number: ALL1-2013-04466

PATIENT
  Age: 39 Year
  Sex: Female
  Weight: 52.2 kg

DRUGS (1)
  1. VYVANSE [Suspect]
     Indication: MULTIPLE SCLEROSIS
     Route: 048
     Dates: start: 2008, end: 2009

REACTIONS (4)
  - Depression [None]
  - Abdominal pain upper [None]
  - Drug dose omission [None]
  - Off label use [None]
